FAERS Safety Report 4346159-6 (Version None)
Quarter: 2004Q2

REPORT INFORMATION
  Report Type: 
  Country: None (occurrence: None)
  Receive Date: 20040426
  Receipt Date: 20040115
  Transmission Date: 20050107
  Serious: No
  Sender: FDA-Public Use
  Company Number: US-GLAXOSMITHKLINE-A0493459A

PATIENT
  Age: 78 Year
  Sex: Female

DRUGS (8)
  1. ZOFRAN [Suspect]
     Indication: PROPHYLAXIS OF NAUSEA AND VOMITING
     Dosage: 8MG TWICE PER DAY
     Route: 048
     Dates: start: 20040102, end: 20040112
  2. VELCADE [Suspect]
     Indication: MULTIPLE MYELOMA
     Route: 042
     Dates: start: 20040102
  3. LOPRESSOR [Concomitant]
  4. LISINOPRIL [Concomitant]
  5. PLAVIX [Concomitant]
  6. LEVOXYL [Concomitant]
  7. LIPITOR [Concomitant]
  8. ATIVAN [Concomitant]

REACTIONS (4)
  - DIARRHOEA [None]
  - PRURITUS [None]
  - RASH [None]
  - URTICARIA [None]
